FAERS Safety Report 11766946 (Version 1)
Quarter: 2015Q4

REPORT INFORMATION
  Report Type: Spontaneous
  Country: AU (occurrence: None)
  Receive Date: 20151120
  Receipt Date: 20151120
  Transmission Date: 20160304
  Serious: Yes (Death, Hospitalization)
  Sender: FDA-Public Use
  Company Number: None

PATIENT
  Age: 3 Year
  Sex: Male
  Weight: 17.1 kg

DRUGS (5)
  1. ONCASPAR [Suspect]
     Active Substance: PEGASPARGASE
     Dates: end: 20151105
  2. VINCRISTINE SULFATE. [Suspect]
     Active Substance: VINCRISTINE SULFATE
     Dates: end: 20151117
  3. CYTARABINE. [Suspect]
     Active Substance: CYTARABINE
     Dates: end: 20151102
  4. DEXAMETHASONE. [Suspect]
     Active Substance: DEXAMETHASONE
     Dates: end: 20151119
  5. METHOTREXATE [Suspect]
     Active Substance: METHOTREXATE
     Dates: end: 20151110

REACTIONS (21)
  - Dyspnoea [None]
  - Sinus congestion [None]
  - Brain oedema [None]
  - Blood pressure abnormal [None]
  - Haematoma [None]
  - Lethargy [None]
  - Coagulopathy [None]
  - Pleural effusion [None]
  - Condition aggravated [None]
  - Streptococcus test positive [None]
  - Agitation [None]
  - Aspiration bone marrow abnormal [None]
  - Escherichia test positive [None]
  - Hypotension [None]
  - Ascites [None]
  - Computerised tomogram abnormal [None]
  - Cerebral haemorrhage [None]
  - Tachycardia [None]
  - Sepsis [None]
  - Ultrasound scan abnormal [None]
  - Hypertension [None]

NARRATIVE: CASE EVENT DATE: 20151114
